FAERS Safety Report 18586296 (Version 1)
Quarter: 2020Q4

REPORT INFORMATION
  Report Type: Spontaneous
  Country: GB (occurrence: GB)
  Receive Date: 20201207
  Receipt Date: 20201207
  Transmission Date: 20210114
  Serious: Yes (Other)
  Sender: FDA-Public Use
  Company Number: GB-PFIZER INC-2020475950

PATIENT
  Sex: Male

DRUGS (4)
  1. ADOPORT [Suspect]
     Active Substance: TACROLIMUS
     Dosage: 10 MG, 1X/DAY (5 MG, BID)
     Route: 065
  2. BACTERIOSTATIC SODIUM CHLORIDE [Suspect]
     Active Substance: SODIUM CHLORIDE
     Dosage: 8 ML, 1X/DAY (4 ML, BID)
     Route: 065
  3. PREDNISOLONE. [Suspect]
     Active Substance: PREDNISOLONE
     Dosage: 5 MG, 1X/DAY
     Route: 065
  4. MYCOPHENOLATE MOFETIL. [Suspect]
     Active Substance: MYCOPHENOLATE MOFETIL
     Dosage: 2 G, 1X/DAY (1 G, BID)
     Route: 065

REACTIONS (1)
  - Coronavirus test positive [Unknown]

NARRATIVE: CASE EVENT DATE: 20201026
